FAERS Safety Report 8530977 (Version 2)
Quarter: 2013Q3

REPORT INFORMATION
  Report Type: Spontaneous
  Country: US (occurrence: US)
  Receive Date: 20120426
  Receipt Date: 20130917
  Transmission Date: 20140515
  Serious: No
  Sender: FDA-Public Use
  Company Number: US-PFIZER INC-2012100942

PATIENT
  Age: 68 Year
  Sex: Female
  Weight: 57.14 kg

DRUGS (9)
  1. LIPITOR [Suspect]
     Indication: BLOOD CHOLESTEROL INCREASED
     Dosage: UNK
  2. ATORVASTATIN CALCIUM [Suspect]
     Indication: BLOOD CHOLESTEROL INCREASED
     Dosage: 10 MG, 1X/DAY
  3. ADVIL PM [Suspect]
     Indication: SLEEP DISORDER
     Dosage: HALF OF 200 MG
     Route: 048
  4. TRAZODONE HCL [Suspect]
     Indication: SLEEP DISORDER
     Dosage: 50 MG, UNK
  5. ATORVASTATIN CALCIUM [Suspect]
     Indication: BLOOD CHOLESTEROL INCREASED
     Dosage: 10 MG, DAILY
     Dates: start: 201111
  6. ATORVASTATIN CALCIUM [Suspect]
     Dosage: 10 MG, 1X/DAY
  7. TYLENOL PM [Suspect]
     Indication: SLEEP DISORDER
     Dosage: UNK
  8. MELATONIN [Suspect]
     Indication: SLEEP DISORDER
     Dosage: 5 MG, DAILY
  9. BABY ASPIRIN [Concomitant]
     Dosage: 81 MG, 1X/DAY

REACTIONS (8)
  - Drug ineffective [Unknown]
  - Gastrooesophageal reflux disease [Not Recovered/Not Resolved]
  - Dysgeusia [Not Recovered/Not Resolved]
  - Constipation [Not Recovered/Not Resolved]
  - Breath odour [Not Recovered/Not Resolved]
  - Eructation [Not Recovered/Not Resolved]
  - Eructation [Not Recovered/Not Resolved]
  - Weight increased [Unknown]
